FAERS Safety Report 21185052 (Version 1)
Quarter: 2022Q3

REPORT INFORMATION
  Report Type: Report from Study
  Country: CN (occurrence: CN)
  Receive Date: 20220808
  Receipt Date: 20220808
  Transmission Date: 20221027
  Serious: No
  Sender: FDA-Public Use
  Company Number: CN-BAXTER-2022BAX013608

PATIENT
  Age: 57 Year
  Sex: Male
  Weight: 85 kg

DRUGS (14)
  1. AMINO ACIDS\DEXTROSE\ELECTROLYTES NOS\SOYBEAN OIL [Suspect]
     Active Substance: AMINO ACIDS\DEXTROSE\ELECTROLYTES NOS\SOYBEAN OIL
     Indication: Product used for unknown indication
     Dosage: 1500 ML, FREQUENCY: UNKNOWN, INFUSION RATE: 3ML/KG/H
     Route: 065
     Dates: start: 20210528, end: 20210606
  2. VITAMINS [Concomitant]
     Active Substance: VITAMINS
     Indication: Drug therapy
     Dosage: 5 ML, FREQUENCY: UNKNOWN
     Route: 065
     Dates: start: 20210528, end: 20210606
  3. UNSPECIFIED INGREDIENT [Concomitant]
     Active Substance: UNSPECIFIED INGREDIENT
     Indication: Drug therapy
     Dosage: 70 ML, FREQUENCY: UNKNOWN
     Route: 065
     Dates: start: 20210528, end: 20210606
  4. DEXTROSE [Concomitant]
     Active Substance: DEXTROSE
     Indication: Drug therapy
     Dosage: 100 ML,FREQUENCY: UNKNOWN, 50% GLUCOSE INJECTION
     Route: 065
     Dates: start: 20210528, end: 20210606
  5. WATER [Concomitant]
     Active Substance: WATER
     Indication: Drug therapy
     Dosage: 10 ML, FREQUENCY: UNKNOWN
     Route: 065
     Dates: start: 20210528, end: 20210606
  6. INSULIN NOS [Concomitant]
     Active Substance: INSULIN NOS
     Indication: Drug therapy
     Dosage: 20 IU, FREQUENCY: UNKNOWN
     Route: 065
     Dates: start: 20210528, end: 20210606
  7. PHLOROGLUCINOL [Concomitant]
     Active Substance: PHLOROGLUCINOL
     Indication: Tetany
     Dosage: 120 MG, ONCE DAILY, ADMINISTERED VIA INTRAVENOUS (PERIPHEAL VEIN/CENTRAL VEIN) ROUTE
     Route: 042
     Dates: start: 20210527
  8. PHLOROGLUCINOL [Concomitant]
     Active Substance: PHLOROGLUCINOL
     Indication: Analgesic therapy
  9. SOMATOSTATIN [Concomitant]
     Active Substance: SOMATOSTATIN
     Indication: Pancreatic enzymes increased
     Dosage: 6 MG, OCE DAILY, ADMINISTERED VIA INTRAVENOUS (PERIPHEAL VEIN/CENTRAL VEIN) ROUTE
     Route: 042
     Dates: start: 20210527, end: 20210530
  10. VITAMINS [Concomitant]
     Active Substance: VITAMINS
     Indication: Vitamin supplementation
     Dosage: 5 ML, ONCE DAILY, ADMINISTERED VIA INTRAVENOUS (PERIPHEAL VEIN/CENTRAL VEIN) ROUTE
     Route: 042
     Dates: start: 20210527
  11. Long chain fat emulsion Injection (OO) [Concomitant]
     Indication: Nutritional supplementation
     Dosage: 250 ML, ONCE DAILY, INTRAVENOUS (PERIPHEAL VEIN/CENTRAL VEIN)
     Route: 042
     Dates: start: 20210527
  12. NADROPARIN CALCIUM [Concomitant]
     Active Substance: NADROPARIN CALCIUM
     Indication: Anticoagulant therapy
     Dosage: 4100 IU, ONCE DAILY, ADMINISTERED VIA INTRAVENOUS (PERIPHEAL VEIN/CENTRAL VEIN) ROUTE
     Route: 042
     Dates: start: 20210529
  13. ALBUMIN HUMAN [Concomitant]
     Active Substance: ALBUMIN HUMAN
     Indication: Supplementation therapy
     Dosage: 20 G, ONCE DAILY, ADMINISTERED VIA INTRAVENOUS (PERIPHEAL VEIN/CENTRAL VEIN) ROUTE
     Route: 042
     Dates: start: 20210529
  14. FRUCTOSE DIPHOSPHATE [Concomitant]
     Indication: Supplementation therapy
     Dosage: 10 G, ONCE DAILY, ADMINISTERED VIA INTRAVENOUS (PERIPHEAL VEIN/CENTRAL VEIN) ROUTE
     Route: 042
     Dates: start: 20210530

REACTIONS (2)
  - Venous thrombosis limb [Recovering/Resolving]
  - Pyrexia [Recovered/Resolved]

NARRATIVE: CASE EVENT DATE: 20210528
